FAERS Safety Report 22040631 (Version 1)
Quarter: 2023Q1

REPORT INFORMATION
  Report Type: Spontaneous
  Country: JP (occurrence: JP)
  Receive Date: 20230227
  Receipt Date: 20230227
  Transmission Date: 20230417
  Serious: Yes (Hospitalization)
  Sender: FDA-Public Use
  Company Number: JP-PFIZER INC-PV202300022437

PATIENT
  Age: 56 Year
  Sex: Male

DRUGS (5)
  1. PAXLOVID [Interacting]
     Active Substance: NIRMATRELVIR\RITONAVIR
     Indication: COVID-19 treatment
     Dosage: [PF-07321332 150 MG]/[RITONAVIR 100 MG]; 2X/DAY
     Route: 048
     Dates: start: 20220911, end: 20220915
  2. TACROLIMUS [Interacting]
     Active Substance: TACROLIMUS
     Indication: Renal transplant
     Dosage: 2.5 MG, 1X/DAY
     Route: 048
  3. TACROLIMUS [Interacting]
     Active Substance: TACROLIMUS
     Dosage: 1.5, 1X/DAY
     Route: 048
     Dates: start: 20220923
  4. METHYLPREDNISOLONE [Concomitant]
     Active Substance: METHYLPREDNISOLONE
     Indication: Renal transplant
     Dosage: 4 MG, 1X/DAY
     Route: 048
  5. MYCOPHENOLIC ACID [Concomitant]
     Active Substance: MYCOPHENOLIC ACID
     Indication: Renal transplant
     Dosage: MORNING: 750MG, EVENING: 500MG(1250MG/DAY)
     Route: 048

REACTIONS (7)
  - Labelled drug-drug interaction medication error [Unknown]
  - Drug interaction [Recovering/Resolving]
  - Drug level increased [Recovering/Resolving]
  - Ileus [Recovering/Resolving]
  - Renal impairment [Recovering/Resolving]
  - Ileus paralytic [Recovering/Resolving]
  - Dehydration [Unknown]

NARRATIVE: CASE EVENT DATE: 20220916
